FAERS Safety Report 6976737-7 (Version None)
Quarter: 2010Q3

REPORT INFORMATION
  Report Type: 
  Country: None (occurrence: None)
  Receive Date: 20100910
  Receipt Date: 20100830
  Transmission Date: 20110219
  Serious: Yes (Hospitalization)
  Sender: FDA-Public Use
  Company Number: CA-JNJFOC-20100900364

PATIENT
  Sex: Female
  Weight: 51.3 kg

DRUGS (9)
  1. REMICADE [Suspect]
     Indication: CROHN'S DISEASE
     Dosage: TOTAL OF 32 INFUSIONS
     Route: 042
  2. PANTOPRAZOLE [Concomitant]
  3. TAMOXIFEN CITRATE [Concomitant]
  4. MICRO-K [Concomitant]
  5. FOLIC ACID [Concomitant]
  6. ACTONEL [Concomitant]
  7. IRON [Concomitant]
  8. CALCIUM [Concomitant]
  9. MAGNESIUM [Concomitant]

REACTIONS (3)
  - DIZZINESS [None]
  - VIRAL INFECTION [None]
  - VOMITING [None]
